FAERS Safety Report 16609618 (Version 2)
Quarter: 2019Q3

REPORT INFORMATION
  Report Type: Report from Study
  Country: US (occurrence: US)
  Receive Date: 20190722
  Receipt Date: 20190724
  Transmission Date: 20191004
  Serious: Yes (Other)
  Sender: FDA-Public Use
  Company Number: US-JNJFOC-20190720650

PATIENT
  Age: 67 Year
  Sex: Female

DRUGS (28)
  1. ALLOPURINOL. [Concomitant]
     Active Substance: ALLOPURINOL
  2. VITAMIN D                          /07503901/ [Concomitant]
     Active Substance: VITAMIN D NOS
  3. LAMICTAL [Concomitant]
     Active Substance: LAMOTRIGINE
  4. ACTONEL [Concomitant]
     Active Substance: RISEDRONATE SODIUM
  5. NICOTINAMIDE [Concomitant]
     Active Substance: NIACINAMIDE
  6. VITAMIN B12 [Concomitant]
     Active Substance: CYANOCOBALAMIN
  7. PROTONIX                           /00661201/ [Concomitant]
     Active Substance: OMEPRAZOLE
  8. CALCITONIN [Concomitant]
     Active Substance: CALCITONIN
  9. ZOFRAN [Concomitant]
     Active Substance: ONDANSETRON HYDROCHLORIDE
  10. MELATONIN [Concomitant]
     Active Substance: MELATONIN
  11. MAGNESIUM [Concomitant]
     Active Substance: MAGNESIUM
  12. OYSTER [Concomitant]
     Active Substance: OYSTER, UNSPECIFIED
  13. NASONEX [Concomitant]
     Active Substance: MOMETASONE FUROATE
  14. HYDROXYZINE [Concomitant]
     Active Substance: HYDROXYZINE HYDROCHLORIDE
  15. IMBRUVICA [Suspect]
     Active Substance: IBRUTINIB
     Dosage: 420 MG, QD
     Route: 048
     Dates: start: 201906
  16. LITHIUM. [Concomitant]
     Active Substance: LITHIUM
  17. COENZYME [Concomitant]
     Active Substance: UBIDECARENONE
  18. PYRIDIUM [Concomitant]
     Active Substance: PHENAZOPYRIDINE
  19. NADOLOL. [Concomitant]
     Active Substance: NADOLOL
  20. L-CARNITINE                        /00878601/ [Concomitant]
     Active Substance: LEVOCARNITINE
  21. OMEGA-3                            /01866101/ [Concomitant]
     Active Substance: OMEGA-3 FATTY ACIDS
  22. FLORASTOR                          /00079701/ [Concomitant]
  23. ADVAIR HFA [Concomitant]
     Active Substance: FLUTICASONE PROPIONATE\SALMETEROL XINAFOATE
  24. AMITRIPTYLINE [Concomitant]
     Active Substance: AMITRIPTYLINE
  25. IMBRUVICA [Suspect]
     Active Substance: IBRUTINIB
     Indication: CHRONIC LYMPHOCYTIC LEUKAEMIA
     Dosage: 420 MG, QD
     Route: 048
     Dates: start: 201809
  26. IMBRUVICA [Suspect]
     Active Substance: IBRUTINIB
     Dosage: 280 MG, QD
     Route: 048
     Dates: start: 2019
  27. VITAMIN K1 [Concomitant]
     Active Substance: PHYTONADIONE
  28. ATIVAN [Concomitant]
     Active Substance: LORAZEPAM

REACTIONS (5)
  - Fall [Unknown]
  - Cardiac arrest [Unknown]
  - Clavicle fracture [Unknown]
  - Blood pressure increased [Unknown]
  - Pneumonia [Unknown]

NARRATIVE: CASE EVENT DATE: 2019
